FAERS Safety Report 5474861-1 (Version None)
Quarter: 2007Q4

REPORT INFORMATION
  Report Type: 
  Country: None (occurrence: None)
  Receive Date: 20071002
  Receipt Date: 20070917
  Transmission Date: 20080405
  Serious: Yes (Life-Threatening)
  Sender: FDA-Public Use
  Company Number: ES-ROCHE-519136

PATIENT
  Age: 51 Year
  Sex: Female

DRUGS (2)
  1. COPEGUS [Suspect]
     Indication: HEPATITIS C
     Dosage: FORM: FILM COATED TABLETS.
     Route: 048
     Dates: start: 20051001, end: 20060915
  2. PEGASYS [Suspect]
     Indication: DRUG USE FOR UNKNOWN INDICATION
     Dosage: FORM: PREFILLED SYRINGE.
     Route: 065
     Dates: start: 20051001, end: 20060915

REACTIONS (6)
  - BONE PAIN [None]
  - HAEMATOMA [None]
  - MYALGIA [None]
  - PURPURA [None]
  - RECTAL HAEMORRHAGE [None]
  - THROMBOCYTOPENIA [None]
